FAERS Safety Report 25874947 (Version 2)
Quarter: 2025Q4

REPORT INFORMATION
  Report Type: Report from Study
  Country: US (occurrence: US)
  Receive Date: 20251002
  Receipt Date: 20251007
  Transmission Date: 20260118
  Serious: Yes (Other)
  Sender: ABBVIE
  Company Number: US-ABBVIE-6433672

PATIENT
  Age: 63 Year
  Sex: Male
  Weight: 96 kg

DRUGS (2)
  1. VYALEV [Suspect]
     Active Substance: FOSCARBIDOPA\FOSLEVODOPA
     Indication: Parkinson^s disease
     Dosage: LAST ADMIN DATE: 2025
     Route: 058
     Dates: start: 20250821
  2. VYALEV [Suspect]
     Active Substance: FOSCARBIDOPA\FOSLEVODOPA
     Dosage: FIRST ADMIN DATE: 2025?DOSE WAS CHANGED
     Route: 058

REACTIONS (9)
  - Infusion site abscess [Recovering/Resolving]
  - Catheter site cellulitis [Unknown]
  - Infusion site injury [Not Recovered/Not Resolved]
  - Catheter site erythema [Unknown]
  - Catheter site swelling [Unknown]
  - Infusion site infection [Recovering/Resolving]
  - Infusion site scab [Not Recovered/Not Resolved]
  - Glucose tolerance impaired [Unknown]
  - Hypertension [Unknown]

NARRATIVE: CASE EVENT DATE: 20250101
